FAERS Safety Report 17112620 (Version 1)
Quarter: 2019Q4

REPORT INFORMATION
  Report Type: Spontaneous
  Country: US (occurrence: US)
  Receive Date: 20191204
  Receipt Date: 20191204
  Transmission Date: 20200122
  Serious: No
  Sender: FDA-Public Use
  Company Number: US-PTC THERAPEUTICS, INC.-US-2019PTC001243

PATIENT
  Age: 12 Year
  Sex: Male

DRUGS (3)
  1. LISINOPRIL. [Suspect]
     Active Substance: LISINOPRIL
     Indication: CARDIAC DISORDER
     Dosage: UNK
     Dates: start: 201902
  2. ENALAPRIL [Concomitant]
     Active Substance: ENALAPRIL
     Indication: CARDIAC DISORDER
     Dosage: UNK
  3. EMFLAZA [Suspect]
     Active Substance: DEFLAZACORT
     Indication: MUSCULAR DYSTROPHY
     Dosage: 30 MG, QD
     Route: 048
     Dates: start: 20170705

REACTIONS (2)
  - Abdominal discomfort [Unknown]
  - Abdominal pain upper [Unknown]

NARRATIVE: CASE EVENT DATE: 201904
